FAERS Safety Report 5403076-8 (Version None)
Quarter: 2007Q3

REPORT INFORMATION
  Report Type: 
  Country: None (occurrence: None)
  Receive Date: 20070713
  Receipt Date: 20070516
  Transmission Date: 20080115
  Serious: Yes (Hospitalization)
  Sender: FDA-Public Use
  Company Number: US-JNJFOC-20061105926

PATIENT
  Age: 31 Year
  Sex: Female
  Weight: 60.3284 kg

DRUGS (9)
  1. ORTHO EVRA [Suspect]
     Indication: CONTRACEPTION
     Dosage: TRANSDERMAL
     Route: 062
     Dates: start: 20050501, end: 20060201
  2. WARFARIN SODIUM [Concomitant]
  3. DIAZEPAM [Concomitant]
  4. PHENERGAN [Concomitant]
  5. TUMS (CALCIUM CARBONATE) [Concomitant]
  6. SKELAXIN [Concomitant]
  7. TOPROL-XL [Concomitant]
  8. ELAVIL [Concomitant]
  9. RESTRORIL (TEMAZEPAM) [Concomitant]

REACTIONS (2)
  - PULMONARY EMBOLISM [None]
  - VENA CAVA THROMBOSIS [None]
